FAERS Safety Report 5626629-0 (Version None)
Quarter: 2008Q1

REPORT INFORMATION
  Report Type: 
  Country: None (occurrence: None)
  Receive Date: 20080214
  Receipt Date: 20080211
  Transmission Date: 20080703
  Serious: Yes (Death, Other)
  Sender: FDA-Public Use
  Company Number: ES-SANOFI-SYNTHELABO-F01200800240

PATIENT

DRUGS (3)
  1. GEMCITABINE [Suspect]
     Route: 041
  2. OXALIPLATIN [Suspect]
     Indication: DIFFUSE LARGE B-CELL LYMPHOMA
     Route: 041
  3. RITUXIMAB [Suspect]
     Route: 041

REACTIONS (6)
  - ANAEMIA [None]
  - HAEMORRHAGE [None]
  - INFECTION [None]
  - NEUROPATHY PERIPHERAL [None]
  - NEUTROPENIA [None]
  - THROMBOCYTOPENIA [None]
